FAERS Safety Report 14588031 (Version 1)
Quarter: 2018Q1

REPORT INFORMATION
  Report Type: Spontaneous
  Country: IT (occurrence: IT)
  Receive Date: 20180301
  Receipt Date: 20180301
  Transmission Date: 20180509
  Serious: Yes (Life-Threatening, Hospitalization, Other)
  Sender: FDA-Public Use
  Company Number: IT-BEXIMCO-2018BEX00004

PATIENT
  Age: 65 Year
  Sex: Male

DRUGS (3)
  1. ACARBOSE. [Concomitant]
     Active Substance: ACARBOSE
     Route: 065
  2. INSULIN [Concomitant]
     Active Substance: INSULIN NOS
     Indication: DIABETES MELLITUS
  3. METFORMIN HYDROCHLORIDE. [Suspect]
     Active Substance: METFORMIN HYDROCHLORIDE
     Indication: DIABETES MELLITUS
     Route: 065

REACTIONS (5)
  - Respiratory failure [Recovered/Resolved]
  - Septic shock [Recovered/Resolved]
  - Renal tubular necrosis [Recovering/Resolving]
  - Pancreatitis chronic [Unknown]
  - Lactic acidosis [Unknown]
